FAERS Safety Report 7887929 (Version 6)
Quarter: 2012Q4

REPORT INFORMATION
  Report Type: 
  Country: US (occurrence: US)
  Receive Date: 20110406
  Receipt Date: 20121025
  Transmission Date: 20130627
  Serious: Yes (Death, Hospitalization, Other)
  Sender: FDA-Public Use
  Company Number: PHEH2011US00460

PATIENT
  Sex: Male

DRUGS (19)
  1. ZOMETA [Suspect]
     Indication: METASTASES TO PROSTATE
     Dosage: 4 mg, QMO
     Route: 042
     Dates: start: 20060518, end: 2008
  2. RADIATION THERAPY [Concomitant]
  3. LUPRON [Concomitant]
  4. CASODEX [Concomitant]
  5. OXYCODONE [Concomitant]
  6. PRILOSEC [Concomitant]
  7. ZOLADEX [Concomitant]
  8. ZANTAC [Concomitant]
  9. ZOLOFT (SERTRALINE) [Concomitant]
  10. TERAZOSIN [Concomitant]
  11. DOCETAXEL [Concomitant]
  12. PREDNISONE [Concomitant]
     Dosage: 5 mg, BID
     Route: 048
  13. SIMVASTATIN [Concomitant]
     Dosage: 80 mg, QD
     Route: 048
  14. VARDENAFIL HYDROCHLORIDE [Concomitant]
     Route: 048
  15. FEXOFENADINE HYDROCHLORIDE [Concomitant]
     Dosage: 180 mg, QD
     Route: 048
  16. CEFUROXIME AXETIL [Concomitant]
     Dosage: UNK UKN, BID
     Route: 048
  17. SILDENAFIL CITRATE [Concomitant]
     Dosage: 100 mg, UNK
     Route: 048
  18. GATIFLOXACIN [Concomitant]
     Dosage: 400 mg, QD
     Route: 048
  19. KETOCONAZOLE [Concomitant]

REACTIONS (66)
  - Death [Fatal]
  - Fall [Unknown]
  - Hip fracture [Unknown]
  - Osteonecrosis of jaw [Unknown]
  - Injury [Unknown]
  - Disability [Unknown]
  - Pain [Unknown]
  - Stress [Unknown]
  - Anhedonia [Unknown]
  - Cellulitis [Unknown]
  - Mitral valve incompetence [Unknown]
  - Hypercholesterolaemia [Unknown]
  - Pulmonary mass [Unknown]
  - Dyslipidaemia [Unknown]
  - Infection [Unknown]
  - Back pain [Unknown]
  - Nocturia [Unknown]
  - Bone lesion [Unknown]
  - Oedema [Unknown]
  - Tendonitis [Unknown]
  - Dyspnoea exertional [Unknown]
  - Fatigue [Unknown]
  - Pain in jaw [Unknown]
  - Hepatitis [Unknown]
  - Spinal column stenosis [Unknown]
  - Osteoarthritis [Unknown]
  - Hypoaesthesia [Unknown]
  - Oropharyngeal pain [Unknown]
  - Dysphonia [Unknown]
  - Bone pain [Unknown]
  - Alopecia [Unknown]
  - Dry mouth [Unknown]
  - Dyspepsia [Unknown]
  - Abdominal pain [Unknown]
  - Diarrhoea [Unknown]
  - Intestinal obstruction [Unknown]
  - Mucosal ulceration [Unknown]
  - Inflammation [Unknown]
  - Overgrowth bacterial [Unknown]
  - Neoplasm progression [Unknown]
  - Malignant neoplasm progression [Unknown]
  - Metastases to adrenals [Unknown]
  - Metastases to spine [Unknown]
  - Metastases to liver [Unknown]
  - Metastases to bone [Unknown]
  - Cancer pain [Unknown]
  - Tachycardia [Unknown]
  - Hypotension [Unknown]
  - Anaemia [Unknown]
  - Gastrooesophageal reflux disease [Unknown]
  - Neuropathy peripheral [Unknown]
  - VIIth nerve paralysis [Recovering/Resolving]
  - Joint swelling [Unknown]
  - Hyponatraemia [Unknown]
  - Hot flush [Unknown]
  - Dysarthria [Unknown]
  - Sinusitis [Unknown]
  - Rhinitis allergic [Unknown]
  - Diastolic dysfunction [Unknown]
  - Left atrial dilatation [Unknown]
  - Tricuspid valve incompetence [Unknown]
  - Myocardial ischaemia [Unknown]
  - Drug abuse [Unknown]
  - Insomnia [Unknown]
  - Pathological fracture [Unknown]
  - Nerve root compression [Unknown]
